FAERS Safety Report 7238948-5 (Version None)
Quarter: 2011Q1

REPORT INFORMATION
  Report Type: 
  Country: None (occurrence: None)
  Receive Date: 20110121
  Receipt Date: 20110113
  Transmission Date: 20110831
  Serious: No
  Sender: FDA-Public Use
  Company Number: US-B.I. PHARMACEUTICALS,INC./RIDGEFIELD-2011-BP-01191BP

PATIENT
  Sex: Female

DRUGS (9)
  1. IRON [Concomitant]
     Indication: ANAEMIA
     Dosage: 650 MG
     Route: 048
  2. PRILOSEC [Concomitant]
     Indication: ABDOMINAL DISCOMFORT
     Dosage: 20 MG
     Route: 048
  3. AMIODARONE [Concomitant]
     Indication: CARDIAC DISORDER
     Dosage: 600 MG
     Route: 048
  4. LASIX [Concomitant]
     Dosage: 20 MG
     Route: 048
  5. LORA TAB [Concomitant]
     Indication: PAIN
     Dosage: 15 MG
     Route: 048
  6. LASIX [Concomitant]
     Indication: RENAL DISORDER
     Dosage: 40 MG
     Route: 048
  7. PRADAXA [Suspect]
     Indication: ANTICOAGULANT THERAPY
     Dosage: 300 MG
     Route: 048
     Dates: start: 20101201
  8. METHOTREXATE [Concomitant]
     Indication: RHEUMATOID ARTHRITIS
     Route: 048
  9. SYNTHROID [Concomitant]
     Indication: THYROID DISORDER
     Dosage: 0.125 MG
     Route: 048

REACTIONS (1)
  - NIGHT SWEATS [None]
